FAERS Safety Report 6844536-2 (Version None)
Quarter: 2010Q3

REPORT INFORMATION
  Report Type: 
  Country: None (occurrence: None)
  Receive Date: 20100715
  Receipt Date: 20100701
  Transmission Date: 20110219
  Serious: Yes (Hospitalization)
  Sender: FDA-Public Use
  Company Number: PHHY2010US43541

PATIENT
  Sex: Female

DRUGS (2)
  1. GLEEVEC [Suspect]
     Indication: CHRONIC MYELOID LEUKAEMIA
     Dosage: 600 MG, QD
     Route: 048
     Dates: start: 20030101, end: 20100101
  2. SYNTHROID [Concomitant]
     Dosage: 125 UG DAILY

REACTIONS (7)
  - CEREBROVASCULAR ACCIDENT [None]
  - HAEMORRHAGE INTRACRANIAL [None]
  - HEADACHE [None]
  - NAUSEA [None]
  - RETCHING [None]
  - VISUAL FIELD DEFECT [None]
  - VOMITING [None]
